FAERS Safety Report 4552079-4 (Version None)
Quarter: 2004Q4

REPORT INFORMATION
  Report Type: 
  Country: None (occurrence: None)
  Receive Date: 20041217
  Receipt Date: 20041013
  Transmission Date: 20050328
  Serious: No
  Sender: FDA-Public Use
  Company Number: 2004-BP-09939BP

PATIENT
  Age: 64 Year
  Sex: Female

DRUGS (15)
  1. SPIRIVA [Suspect]
     Indication: CHRONIC OBSTRUCTIVE AIRWAYS DISEASE
     Dosage: 18 MCG (18 MCG); IH
     Route: 055
  2. SPIRIVA [Suspect]
  3. XOPENEX [Concomitant]
  4. ADVAIR (SERETIDE MITE) [Concomitant]
  5. PREDNISONE [Concomitant]
  6. SINGULAIR (MONTELUKAST) [Concomitant]
  7. ALLEGRA [Concomitant]
  8. NASACORT AQ (TRIAMCINOLONE ACETONIDE) [Concomitant]
  9. PATANOL [Concomitant]
  10. ALTACE [Concomitant]
  11. LESCOL XL [Concomitant]
  12. PAXIL [Concomitant]
  13. PREVACID [Concomitant]
  14. SLOW-FE (FERROUS SULFATE EXSICCATED) [Concomitant]
  15. ALLERGY SHOTS (ALLERGY MEDICATION) [Concomitant]

REACTIONS (1)
  - DYSPNOEA [None]
